FAERS Safety Report 7904027-4 (Version None)
Quarter: 2011Q4

REPORT INFORMATION
  Report Type: 
  Country: None (occurrence: None)
  Receive Date: 20111109
  Receipt Date: 20110922
  Transmission Date: 20120403
  Serious: Yes (Hospitalization, Other)
  Sender: FDA-Public Use
  Company Number: PHHY2010IE07291

PATIENT
  Sex: Female

DRUGS (17)
  1. PERINDOPRIL ERBUMINE [Concomitant]
     Dosage: 5 MG, QD
     Route: 065
  2. ZIMOVANE [Concomitant]
     Dosage: 7.5 MG, NOCTE
     Route: 048
  3. CLOZARIL [Suspect]
     Indication: SCHIZOPHRENIA
     Route: 048
     Dates: start: 19960101
  4. LEVOTHYROXINE SODIUM [Concomitant]
     Dosage: 50 UG, DAILY
     Route: 065
  5. CHLORPROMAZINE HCL [Concomitant]
  6. CHLORPROMAZINE [Concomitant]
     Dosage: 200 MG, BID
     Route: 065
  7. INVEGA [Concomitant]
     Dosage: 12 MG, QD
     Route: 065
  8. PLAVIX [Concomitant]
     Dosage: 75 MG, QD
     Route: 065
  9. VENLAFAXINE [Concomitant]
     Indication: DEPRESSION
     Dosage: 300 MG, QD
     Route: 048
     Dates: start: 20050101
  10. CAPOTEN [Concomitant]
     Indication: HYPERTENSION
     Dosage: 50 MG, DAILY
     Route: 048
  11. CHLORPROMAZINE [Concomitant]
     Dosage: 100 MG, BID
     Route: 065
  12. ATORVASTATIN [Concomitant]
     Dosage: 40 MG, QD
     Route: 065
  13. CLOZARIL [Suspect]
  14. CENTYL K [Concomitant]
     Indication: HYPERTENSION
     Route: 048
  15. BISOPROLOL [Concomitant]
     Dosage: 5 MG, QD
     Route: 065
  16. CLOZARIL [Suspect]
     Dosage: 700 MG, UNK
     Route: 048
     Dates: start: 20060101
  17. ASPIRIN [Concomitant]
     Dosage: 75 MG, QD
     Route: 065

REACTIONS (8)
  - DIZZINESS [None]
  - TRANSIENT ISCHAEMIC ATTACK [None]
  - ISCHAEMIC CEREBRAL INFARCTION [None]
  - MALAISE [None]
  - CEREBROVASCULAR ACCIDENT [None]
  - SYNCOPE [None]
  - VASCULAR STENOSIS [None]
  - ASTHENIA [None]
